FAERS Safety Report 25766844 (Version 2)
Quarter: 2025Q4

REPORT INFORMATION
  Report Type: Spontaneous
  Country: US (occurrence: US)
  Receive Date: 20250905
  Receipt Date: 20251023
  Transmission Date: 20260117
  Serious: No
  Sender: ADMA BIOLOGICS
  Company Number: US-ADMA BIOLOGICS INC.-US-2025ADM000256

PATIENT
  Age: 41 Year
  Sex: Female
  Weight: 67.27 kg

DRUGS (6)
  1. BIVIGAM [Suspect]
     Active Substance: HUMAN IMMUNOGLOBULIN G
     Indication: Immunodeficiency common variable
     Dosage: 40 G, 5 G VIALS (8) EVERY 4 WEEKS
     Route: 042
     Dates: start: 20250819, end: 20250819
  2. SOLU-MEDROL [Concomitant]
     Active Substance: METHYLPREDNISOLONE SODIUM SUCCINATE
     Indication: Premedication
     Dosage: 30 MILLIGRAM, UNK
     Route: 042
     Dates: start: 20250819, end: 20250819
  3. PROZAC [Concomitant]
     Active Substance: FLUOXETINE HYDROCHLORIDE
     Indication: Product used for unknown indication
     Dosage: 40 MILLIGRAM, UNK
     Route: 065
  4. MULTI VITAMIN [ASCORBIC ACID;FOLIC ACID;NICOTINIC ACID;PYRIDOXINE HYDR [Concomitant]
     Indication: Product used for unknown indication
     Dosage: UNK, UNK
     Route: 065
  5. LEVOXYL [Concomitant]
     Active Substance: LEVOTHYROXINE SODIUM
     Indication: Product used for unknown indication
     Dosage: 112 MICROGRAM, UNK
     Route: 065
  6. TRAZODONE [Concomitant]
     Active Substance: TRAZODONE HYDROCHLORIDE
     Indication: Product used for unknown indication
     Dosage: 50 MG, UNK
     Route: 065

REACTIONS (3)
  - Urticaria [Recovered/Resolved]
  - Swelling face [Recovered/Resolved]
  - Pruritus [Recovered/Resolved]

NARRATIVE: CASE EVENT DATE: 20250819
